FAERS Safety Report 5285273-8 (Version None)
Quarter: 2007Q1

REPORT INFORMATION
  Report Type: 
  Country: None (occurrence: None)
  Receive Date: 20070328
  Receipt Date: 20070320
  Transmission Date: 20070707
  Serious: Yes (Death)
  Sender: FDA-Public Use
  Company Number: 430003E07ITA

PATIENT
  Age: 63 Year
  Sex: Female

DRUGS (6)
  1. NOVANTRONE [Suspect]
     Indication: ACUTE MYELOID LEUKAEMIA
     Dosage: 10
     Dates: start: 20041126, end: 20041130
  2. CYTARABINE [Suspect]
     Indication: ACUTE MYELOID LEUKAEMIA
     Dosage: 140
     Dates: start: 20041126, end: 20041202
  3. TAZOBACTAM [Concomitant]
  4. AMIKACIN/00391001/ [Concomitant]
  5. CORTICOSTEROIDS [Concomitant]
  6. ETOPOSIDE [Suspect]
     Indication: ACUTE MYELOID LEUKAEMIA
     Dosage: 140
     Dates: start: 20041126, end: 20041128

REACTIONS (6)
  - ACUTE PULMONARY OEDEMA [None]
  - BONE MARROW FAILURE [None]
  - BRONCHOPULMONARY ASPERGILLOSIS [None]
  - ESCHERICHIA SEPSIS [None]
  - HYPERBILIRUBINAEMIA [None]
  - PULMONARY INFARCTION [None]
